FAERS Safety Report 4750402-9 (Version None)
Quarter: 2005Q3

REPORT INFORMATION
  Report Type: 
  Country: None (occurrence: None)
  Receive Date: 20050818
  Receipt Date: 20050804
  Transmission Date: 20060218
  Serious: Yes (Death, Hospitalization)
  Sender: FDA-Public Use
  Company Number: US-2005-012681

PATIENT
  Age: 76 Year
  Sex: Male
  Weight: 92.5 kg

DRUGS (11)
  1. CAMPATH [Suspect]
     Indication: T-CELL CHRONIC LYMPHOCYTIC LEUKAEMIA
     Dosage: 30 MG, 3X/WEEK MONTHLY, SUBCUTANEOUS; 30 MG, 3X/WEEK MONTHLY, SUBCUTANEOUS; 3/10/30MG, SUBCUTANEOUE
     Route: 058
     Dates: start: 20050111, end: 20050404
  2. CAMPATH [Suspect]
     Indication: T-CELL CHRONIC LYMPHOCYTIC LEUKAEMIA
     Dosage: 30 MG, 3X/WEEK MONTHLY, SUBCUTANEOUS; 30 MG, 3X/WEEK MONTHLY, SUBCUTANEOUS; 3/10/30MG, SUBCUTANEOUE
     Route: 058
     Dates: start: 20050516, end: 20050520
  3. CAMPATH [Suspect]
     Indication: T-CELL CHRONIC LYMPHOCYTIC LEUKAEMIA
     Dosage: 30 MG, 3X/WEEK MONTHLY, SUBCUTANEOUS; 30 MG, 3X/WEEK MONTHLY, SUBCUTANEOUS; 3/10/30MG, SUBCUTANEOUE
     Route: 058
     Dates: start: 20050629, end: 20050706
  4. PROSCAR [Concomitant]
  5. ACYCLOVIR [Concomitant]
  6. FOLIC ACID [Concomitant]
  7. BACTRIM DS [Concomitant]
  8. BENADRYL  ACHE   (AMMONIUM CHLORIDE, DIPHENHYDRAMINE HYDROCHLORIDE, ME [Concomitant]
  9. TYLENOL [Concomitant]
  10. ZANTAC [Concomitant]
  11. CIPRO [Concomitant]

REACTIONS (6)
  - BLOOD ALKALINE PHOSPHATASE INCREASED [None]
  - JAUNDICE [None]
  - MALIGNANT NEOPLASM PROGRESSION [None]
  - NEUTROPENIA [None]
  - SUBARACHNOID HAEMORRHAGE [None]
  - T-CELL CHRONIC LYMPHOCYTIC LEUKAEMIA [None]
